FAERS Safety Report 17575277 (Version 1)
Quarter: 2020Q1

REPORT INFORMATION
  Report Type: Spontaneous
  Country: US (occurrence: US)
  Receive Date: 20200317
  Receipt Date: 20200317
  Transmission Date: 20200409
  Serious: Yes (Other)
  Sender: FDA-Public Use
  Company Number: None

PATIENT
  Age: 66 Year
  Sex: Female
  Weight: 56.7 kg

DRUGS (5)
  1. VITAFUSION WOMENS MULTI-VITAMIN [Concomitant]
  2. TOPICAL STEROIDS [Concomitant]
     Active Substance: UNSPECIFIED INGREDIENT
  3. MAXALT [Concomitant]
     Active Substance: RIZATRIPTAN BENZOATE
  4. FIBERWELL GUMMIES BY VITAFUSION [Concomitant]
  5. OTEZLA [Suspect]
     Active Substance: APREMILAST
     Indication: PSORIASIS
     Dosage: ?          QUANTITY:1 DF DOSAGE FORM;?
     Route: 048
     Dates: start: 20191208, end: 20200301

REACTIONS (3)
  - Muscle spasms [None]
  - Sleep disorder [None]
  - Pain in extremity [None]

NARRATIVE: CASE EVENT DATE: 201912
